FAERS Safety Report 9318042 (Version 1)
Quarter: 2013Q2

REPORT INFORMATION
  Report Type: Spontaneous
  Country: US (occurrence: None)
  Receive Date: 20130529
  Receipt Date: 20130529
  Transmission Date: 20140414
  Serious: Yes (Other)
  Sender: FDA-Public Use
  Company Number: None

PATIENT
  Age: 86 Year
  Sex: Female
  Weight: 48.08 kg

DRUGS (1)
  1. LEVOFLOXACIN [Suspect]
     Dosage: IVX1
     Dates: start: 20121111

REACTIONS (4)
  - Pain [None]
  - Pneumonia [None]
  - Pruritus [None]
  - Blood glucose increased [None]
